FAERS Safety Report 14532728 (Version 1)
Quarter: 2018Q1

REPORT INFORMATION
  Report Type: Report from Study
  Country: None (occurrence: IT)
  Receive Date: 20180214
  Receipt Date: 20180214
  Transmission Date: 20180509
  Serious: Yes (Hospitalization)
  Sender: FDA-Public Use
  Company Number: IT-ABBVIE-18K-083-2256845-00

PATIENT
  Age: 70 Year
  Sex: Female

DRUGS (1)
  1. DUODOPA [Suspect]
     Active Substance: CARBIDOPA\LEVODOPA
     Indication: PARKINSON^S DISEASE
     Dosage: MD 4+3?CR 1,9?ED 3
     Route: 050
     Dates: start: 20180108, end: 20180210

REACTIONS (2)
  - Delirium [Unknown]
  - Renal failure [Unknown]

NARRATIVE: CASE EVENT DATE: 20180210
